FAERS Safety Report 6328229-6 (Version None)
Quarter: 2009Q3

REPORT INFORMATION
  Report Type: 
  Country: None (occurrence: None)
  Receive Date: 20090825
  Receipt Date: 20090217
  Transmission Date: 20100115
  Serious: No
  Sender: FDA-Public Use
  Company Number: US-ABBOTT-09P-163-0558241-00

PATIENT
  Age: 31 Year
  Sex: Female
  Weight: 99.88 kg

DRUGS (3)
  1. SYNTHROID [Suspect]
     Indication: HYPOTHYROIDISM
     Dosage: .
     Route: 048
     Dates: start: 20030101, end: 20081201
  2. LEVOTHYROXINE SODIUM [Suspect]
     Indication: HYPOTHYROIDISM
     Route: 048
     Dates: start: 20081201, end: 20090201
  3. LEVOTHYROXINE SODIUM [Suspect]
     Route: 048
     Dates: start: 20090201

REACTIONS (10)
  - ABDOMINAL PAIN UPPER [None]
  - ANXIETY [None]
  - BLOOD THYROID STIMULATING HORMONE INCREASED [None]
  - DIARRHOEA [None]
  - EXPIRED DRUG ADMINISTERED [None]
  - FATIGUE [None]
  - FEELING HOT [None]
  - HYPERHIDROSIS [None]
  - MUSCULAR WEAKNESS [None]
  - PALPITATIONS [None]
